FAERS Safety Report 4294517-0 (Version None)
Quarter: 2004Q1

REPORT INFORMATION
  Report Type: 
  Country: None (occurrence: None)
  Receive Date: 20040211
  Receipt Date: 20040127
  Transmission Date: 20041129
  Serious: Yes (Hospitalization)
  Sender: FDA-Public Use
  Company Number: 2004SE00242

PATIENT
  Age: 57 Year
  Sex: Female

DRUGS (1)
  1. MARCAINE HCL W/ EPINEPHRINE [Suspect]
     Indication: LOCAL ANAESTHESIA
     Dosage: 100 MG ONCE
     Dates: start: 20021022, end: 20021022

REACTIONS (4)
  - ACCIDENT [None]
  - DELAYED RECOVERY FROM ANAESTHESIA [None]
  - FALL [None]
  - JOINT INJURY [None]
